FAERS Safety Report 17400361 (Version 1)
Quarter: 2020Q1

REPORT INFORMATION
  Report Type: Spontaneous
  Country: IT (occurrence: IT)
  Receive Date: 20200211
  Receipt Date: 20200211
  Transmission Date: 20200409
  Serious: Yes (Hospitalization)
  Sender: FDA-Public Use
  Company Number: IT-TEVA-2020-IT-1183948

PATIENT
  Age: 53 Year
  Sex: Female

DRUGS (11)
  1. NORVASC [Concomitant]
     Active Substance: AMLODIPINE BESYLATE
  2. FUROSEMIDE TEVA GENERICS 25 MG COMPRESSE [Concomitant]
     Dosage: 1 DOSAGE FORM
     Route: 048
  3. CIPROFLOXACIN. [Suspect]
     Active Substance: CIPROFLOXACIN
     Indication: ANTIBIOTIC PROPHYLAXIS
     Dosage: 2DOSAGE FORMS
     Route: 048
     Dates: start: 20200107, end: 20200110
  4. COUMADIN [Suspect]
     Active Substance: WARFARIN SODIUM
     Indication: THROMBOSIS PROPHYLAXIS
     Dosage: 7.5 MG
     Route: 048
     Dates: start: 20200108, end: 20200110
  5. PANTORC [Concomitant]
     Active Substance: PANTOPRAZOLE SODIUM
     Dosage: 1 DOSAGE FORM
     Route: 048
  6. TELMISARTAN SANDOZ 80 MG COMPRESSE [Concomitant]
     Dosage: 1 DOSAGE FORM
     Route: 048
  7. SERETIDE [Concomitant]
     Active Substance: FLUTICASONE PROPIONATE\SALMETEROL XINAFOATE
     Indication: ASTHMA
     Route: 055
  8. AIRCORT [Concomitant]
     Indication: ASTHMA
     Route: 055
  9. SELEPARINA 7.600 U.I. ANTIXA/0,8 ML SOLUZIONE INIETTABILE [Suspect]
     Active Substance: NADROPARIN CALCIUM
     Indication: THROMBOSIS PROPHYLAXIS
     Dosage: 1.6 ML
     Route: 058
     Dates: start: 20200108, end: 20200110
  10. DILATREND [Concomitant]
     Active Substance: CARVEDILOL
     Dosage: 1 DOSAGE FORM
     Route: 048
  11. MONTELUKAST TEVA 10 MG COMPRESSE RIVESTITE CON FILM [Concomitant]
     Indication: ASTHMA
     Dosage: 1 DOSAGE FORM
     Route: 048

REACTIONS (1)
  - Muscle haemorrhage [Recovering/Resolving]

NARRATIVE: CASE EVENT DATE: 20200110
